FAERS Safety Report 7203490-4 (Version None)
Quarter: 2010Q4

REPORT INFORMATION
  Report Type: 
  Country: None (occurrence: None)
  Receive Date: 20101228
  Receipt Date: 20101228
  Transmission Date: 20110411
  Serious: Yes (Hospitalization)
  Sender: FDA-Public Use
  Company Number: None

PATIENT
  Age: 68 Year
  Sex: Male
  Weight: 96.1626 kg

DRUGS (19)
  1. CLOZAPINE [Suspect]
     Indication: PSYCHOTIC DISORDER
     Dosage: 100MG UP TO 250MG QHS PO
     Route: 048
     Dates: start: 20101119, end: 20101202
  2. LAMICTAL [Concomitant]
  3. SEROQUEL [Concomitant]
  4. MILK OF MAGNESIA SUSP [Concomitant]
  5. ACETAMINOPHEN [Concomitant]
  6. AGGRENOX [Concomitant]
  7. ATENOLOL [Concomitant]
  8. HYDROCHLOROTHIAZIDE [Concomitant]
  9. ZOCOR [Concomitant]
  10. AVODARD [Concomitant]
  11. COMTAN [Concomitant]
  12. DOCUSATE SODIUM [Concomitant]
  13. EXELON [Concomitant]
  14. THERA MULTIVITAMIN [Concomitant]
  15. CARBIDOPA AND LEVODOPA [Concomitant]
  16. CLONAZEPAM [Concomitant]
  17. ZOFRAN [Concomitant]
  18. DEPAKOTE TBEC [Concomitant]
  19. .. [Concomitant]

REACTIONS (7)
  - AGITATION [None]
  - DROOLING [None]
  - DYSPHAGIA [None]
  - ENCEPHALOPATHY [None]
  - MUSCLE RIGIDITY [None]
  - NEUROLEPTIC MALIGNANT SYNDROME [None]
  - PYREXIA [None]
